FAERS Safety Report 5949155-8 (Version None)
Quarter: 2008Q4

REPORT INFORMATION
  Report Type: 
  Country: None (occurrence: None)
  Receive Date: 20081111
  Receipt Date: 20081031
  Transmission Date: 20090506
  Serious: Yes (Other)
  Sender: FDA-Public Use
  Company Number: US-PFIZER INC-2008093899

PATIENT
  Sex: Female
  Weight: 127 kg

DRUGS (4)
  1. CHANTIX [Suspect]
     Indication: SMOKING CESSATION THERAPY
     Dates: start: 20081001, end: 20081031
  2. VICODIN [Suspect]
     Dates: start: 20080912
  3. SKELAXIN [Suspect]
     Indication: BACK PAIN
  4. TYLENOL (CAPLET) [Concomitant]

REACTIONS (2)
  - DEPRESSION [None]
  - SUICIDAL IDEATION [None]
